FAERS Safety Report 8780082 (Version 1)
Quarter: 2012Q4

REPORT INFORMATION
  Report Type: 
  Country: US (occurrence: US)
  Receive Date: 20120912
  Receipt Date: 20120912
  Transmission Date: 20130627
  Serious: Yes (Other)
  Sender: FDA-Public Use
  Company Number: US-VERTEX PHARMACEUTICAL INC.-AE-2012-006253

PATIENT
  Age: 58 Year
  Sex: Female

DRUGS (3)
  1. INCIVEK [Suspect]
     Indication: HEPATITIS C
     Route: 048
     Dates: start: 20120202, end: 20120427
  2. RIBAVIRIN [Concomitant]
     Indication: HEPATITIS C
     Dosage: UNK
     Route: 048
     Dates: start: 20120202
  3. PEGASYS [Concomitant]
     Indication: HEPATITIS C
     Dosage: 180 ?g, UNK
     Route: 058
     Dates: start: 20120202

REACTIONS (3)
  - Pruritus generalised [Not Recovered/Not Resolved]
  - White blood cell count decreased [Unknown]
  - Withdrawal syndrome [Unknown]
